FAERS Safety Report 7248311-9 (Version None)
Quarter: 2011Q1

REPORT INFORMATION
  Report Type: 
  Country: None (occurrence: None)
  Receive Date: 20110127
  Receipt Date: 20110124
  Transmission Date: 20110831
  Serious: Yes (Other)
  Sender: FDA-Public Use
  Company Number: US-PFIZER INC-2011016913

PATIENT
  Sex: Male

DRUGS (4)
  1. PHENAZOPYRIDINE [Concomitant]
     Indication: DYSURIA
     Dosage: 100 MG, UNK
  2. CHANTIX [Suspect]
     Indication: SMOKING CESSATION THERAPY
     Dosage: 0.5 MG, DAILY
     Route: 048
     Dates: start: 20110120
  3. TAMSULOSIN [Concomitant]
     Indication: DYSURIA
     Dosage: UNK
  4. IBUPROFEN [Concomitant]
     Dosage: UNK

REACTIONS (3)
  - BACK PAIN [None]
  - RENAL DISORDER [None]
  - LETHARGY [None]
